FAERS Safety Report 14081528 (Version 1)
Quarter: 2017Q4

REPORT INFORMATION
  Report Type: Spontaneous
  Country: US (occurrence: None)
  Receive Date: 20171012
  Receipt Date: 20171012
  Transmission Date: 20180321
  Serious: No
  Sender: FDA-Public Use
  Company Number: None

PATIENT
  Age: 60 Year
  Sex: Male

DRUGS (15)
  1. AMIODARONE [Concomitant]
     Active Substance: AMIODARONE
  2. CHLORHEXADINE [Concomitant]
     Active Substance: CHLORHEXIDINE
  3. METOPROLOL. [Concomitant]
     Active Substance: METOPROLOL
  4. IPRATROPIUM [Concomitant]
     Active Substance: IPRATROPIUM
  5. LIDOCAINE. [Concomitant]
     Active Substance: LIDOCAINE
  6. VANCOMYCIN [Suspect]
     Active Substance: VANCOMYCIN
     Route: 042
  7. FENTANYL. [Concomitant]
     Active Substance: FENTANYL
  8. PANTOPRAZOLE [Concomitant]
     Active Substance: PANTOPRAZOLE
  9. FLUCONAZOLE. [Concomitant]
     Active Substance: FLUCONAZOLE
  10. HYDROMORPHONE [Concomitant]
     Active Substance: HYDROMORPHONE
  11. NOREPINEPHRINE. [Concomitant]
     Active Substance: NOREPINEPHRINE
  12. FUROSEMIDE. [Concomitant]
     Active Substance: FUROSEMIDE
  13. PIPERACILLIN/TAZOBACTAM [Suspect]
     Active Substance: PIPERACILLIN SODIUM\TAZOBACTAM SODIUM
     Indication: INFECTION
     Route: 042
     Dates: start: 20170905, end: 20170908
  14. ALBUTEROL. [Concomitant]
     Active Substance: ALBUTEROL
  15. HEPARIN [Concomitant]
     Active Substance: HEPARIN SODIUM

REACTIONS (7)
  - Hernia [None]
  - Abscess [None]
  - Chest pain [None]
  - Tubulointerstitial nephritis [None]
  - Oesophageal disorder [None]
  - Blood creatinine increased [None]
  - Renal injury [None]

NARRATIVE: CASE EVENT DATE: 20170908
